FAERS Safety Report 7320045-1 (Version None)
Quarter: 2011Q1

REPORT INFORMATION
  Report Type: 
  Country: None (occurrence: None)
  Receive Date: 20110228
  Receipt Date: 20110222
  Transmission Date: 20110831
  Serious: Yes (Hospitalization, Congenital Anomaly)
  Sender: FDA-Public Use
  Company Number: US-GENZYME-MOZO-1000452

PATIENT
  Sex: Female
  Weight: 59.5 kg

DRUGS (15)
  1. MOZOBIL [Suspect]
     Indication: ACUTE MYELOID LEUKAEMIA
     Dosage: 14616 MCG, QOD
     Route: 058
     Dates: start: 20101214, end: 20101214
  2. ATIVAN [Concomitant]
     Indication: NAUSEA
     Dosage: 0.5 MG, PRN
     Route: 048
  3. PROTONIX [Concomitant]
     Indication: PRODUCT USED FOR UNKNOWN INDICATION
     Dosage: 40 MG, BID
     Route: 048
  4. VICODIN [Concomitant]
     Indication: PAIN
     Dosage: UNK
     Route: 048
  5. COMPAZINE [Concomitant]
     Indication: VOMITING
  6. POTASSIUM CHLORIDE [Concomitant]
     Indication: PRODUCT USED FOR UNKNOWN INDICATION
     Dosage: 10 MEQ, BID
     Route: 048
  7. NEUPOGEN [Concomitant]
     Indication: ACUTE MYELOID LEUKAEMIA
     Dosage: UNK
     Dates: start: 20101214
  8. SORAFENIB [Concomitant]
     Indication: ACUTE MYELOID LEUKAEMIA
     Dosage: 400 MG, BID
     Route: 048
     Dates: start: 20101214
  9. COMPAZINE [Concomitant]
     Indication: NAUSEA
     Dosage: 10 MG, PRN
     Route: 048
  10. VALTREX [Concomitant]
     Indication: PRODUCT USED FOR UNKNOWN INDICATION
     Dosage: 500 MG, QD
     Route: 048
  11. ZOFRAN [Concomitant]
     Indication: NAUSEA
     Dosage: 8 MG, PRN
     Route: 048
  12. ATIVAN [Concomitant]
     Indication: VOMITING
  13. COLACE [Concomitant]
     Indication: PRODUCT USED FOR UNKNOWN INDICATION
     Dosage: 100 MG, QD
     Route: 048
  14. ZOFRAN [Concomitant]
     Indication: VOMITING
  15. FILGRASTIM [Concomitant]
     Indication: PRODUCT USED FOR UNKNOWN INDICATION
     Dosage: 600 MCG, QOD
     Route: 058
     Dates: start: 20101214

REACTIONS (5)
  - FEBRILE NEUTROPENIA [None]
  - NAUSEA [None]
  - VOMITING [None]
  - ABDOMINAL DISCOMFORT [None]
  - HIATUS HERNIA [None]
